FAERS Safety Report 6299484-6 (Version None)
Quarter: 2009Q3

REPORT INFORMATION
  Report Type: 
  Country: None (occurrence: None)
  Receive Date: 20090806
  Receipt Date: 20090729
  Transmission Date: 20100115
  Serious: Yes (Life-Threatening, Hospitalization)
  Sender: FDA-Public Use
  Company Number: B0586263A

PATIENT
  Age: 79 Year
  Sex: Female

DRUGS (12)
  1. AVANDAMET [Suspect]
     Indication: DRUG USE FOR UNKNOWN INDICATION
     Route: 048
     Dates: end: 20090603
  2. BIPROFENID [Suspect]
     Route: 048
     Dates: start: 20090514, end: 20090523
  3. COAPROVEL [Suspect]
     Indication: DRUG USE FOR UNKNOWN INDICATION
     Route: 048
  4. MONOTILDIEM LP [Concomitant]
     Route: 065
  5. ZOCOR [Concomitant]
     Route: 065
  6. ZOCOR [Concomitant]
     Route: 065
  7. LASIX [Concomitant]
     Route: 065
  8. GAVISCON [Concomitant]
     Route: 065
  9. EUPANTOL [Concomitant]
     Route: 065
  10. DAFALGAN [Concomitant]
     Route: 065
  11. IXPRIM [Concomitant]
     Route: 065
  12. ALTIM [Concomitant]
     Route: 065

REACTIONS (11)
  - ABDOMINAL PAIN UPPER [None]
  - COMA [None]
  - DIARRHOEA [None]
  - DRUG TOXICITY [None]
  - FAECES DISCOLOURED [None]
  - GENERAL PHYSICAL HEALTH DETERIORATION [None]
  - LACTIC ACIDOSIS [None]
  - MALAISE [None]
  - MELAENA [None]
  - RENAL FAILURE ACUTE [None]
  - VOMITING [None]
